FAERS Safety Report 9026151 (Version 1)
Quarter: 2013Q1

REPORT INFORMATION
  Report Type: Spontaneous
  Country: US (occurrence: None)
  Receive Date: 20130108
  Receipt Date: 20130108
  Transmission Date: 20140127
  Serious: Yes (Hospitalization, Disabling)
  Sender: FDA-Public Use
  Company Number: 1546284

PATIENT
  Age: 23 Month
  Sex: Female

DRUGS (3)
  1. BUPIVACAINE [Suspect]
     Indication: EPIDURAL ANAESTHESIA
     Dosage: EPIDURAL
  2. LIDOCAINE [Suspect]
     Indication: EPIDURAL ANAESTHESIA
     Dosage: EPIDURAL
  3. ANESTHETICS [Concomitant]

REACTIONS (14)
  - Paralysis flaccid [None]
  - Joint range of motion decreased [None]
  - Neuralgia [None]
  - Spinal cord ischaemia [None]
  - Irritability [None]
  - Spinal cord oedema [None]
  - Motor dysfunction [None]
  - Allodynia [None]
  - Spinal cord injury [None]
  - Vascular injury [None]
  - Neurotoxicity [None]
  - Spinal cord infarction [None]
  - Sensory loss [None]
  - Drug interaction [None]
